FAERS Safety Report 4878389-9 (Version None)
Quarter: 2005Q4

REPORT INFORMATION
  Report Type: 
  Country: None (occurrence: None)
  Receive Date: 20051212
  Receipt Date: 20051012
  Transmission Date: 20060501
  Serious: Yes (Disabling)
  Sender: FDA-Public Use
  Company Number: 2005-01553

PATIENT
  Age: 73 Year
  Sex: Male
  Weight: 77.1 kg

DRUGS (3)
  1. VELCADE [Suspect]
     Indication: MULTIPLE MYELOMA
     Dosage: 2.60 MG,
     Dates: start: 20050401, end: 20050601
  2. MICARDIS HCT [Concomitant]
  3. GLUCOVANCE (METFORMIN HYDROCHLORIDE, GLIBENCLAMIDE) [Concomitant]

REACTIONS (1)
  - NEUROPATHY PERIPHERAL [None]
